FAERS Safety Report 4341510-5 (Version None)
Quarter: 2004Q2

REPORT INFORMATION
  Report Type: 
  Country: None (occurrence: None)
  Receive Date: 20040415
  Receipt Date: 20040405
  Transmission Date: 20050107
  Serious: Yes (Hospitalization)
  Sender: FDA-Public Use
  Company Number: 04P-076-0256061-00

PATIENT
  Age: 50 Year
  Sex: Female
  Weight: 75 kg

DRUGS (4)
  1. NORVIR [Suspect]
     Indication: HIV INFECTION
     Dosage: 100 MG, 2 IN 1 D
  2. STAVUDINE [Suspect]
     Indication: HIV INFECTION
     Dosage: 30 MG, 2 IN 1 D
  3. LAMIVUDINE [Suspect]
     Indication: HIV INFECTION
     Dosage: 150 MG, 2 IN 1 D
  4. INDINAVIR [Suspect]
     Indication: HIV INFECTION
     Dosage: 400 MG, 2 IN 1 D

REACTIONS (19)
  - ABDOMINAL PAIN UPPER [None]
  - C-REACTIVE PROTEIN INCREASED [None]
  - DRUG TOXICITY [None]
  - ERYTHEMA [None]
  - GASTROINTESTINAL MUCOSAL DISORDER [None]
  - GENERAL NUTRITION DISORDER [None]
  - HEPATIC STEATOSIS [None]
  - HEPATOMEGALY [None]
  - HYPERLACTACIDAEMIA [None]
  - LEUKOPLAKIA ORAL [None]
  - METABOLIC ACIDOSIS [None]
  - MITOCHONDRIAL TOXICITY [None]
  - MYALGIA [None]
  - NAUSEA [None]
  - OPPORTUNISTIC INFECTION [None]
  - PYREXIA [None]
  - STOMATITIS [None]
  - TACHYCARDIA [None]
  - VOMITING [None]
